FAERS Safety Report 8241439 (Version 9)
Quarter: 2013Q3

REPORT INFORMATION
  Report Type: Report from Study
  Country: FR (occurrence: FR)
  Receive Date: 20111111
  Receipt Date: 20130923
  Transmission Date: 20140515
  Serious: Yes (Death, Other)
  Sender: FDA-Public Use
  Company Number: FR-PFIZER INC-2011270117

PATIENT
  Age: 42 Year
  Sex: Male
  Weight: 81 kg

DRUGS (5)
  1. CRIZOTINIB [Suspect]
     Indication: LUNG ADENOCARCINOMA METASTATIC
     Dosage: 250 MG, 2X/DAY
     Route: 048
     Dates: start: 20110601, end: 20111104
  2. CRIZOTINIB [Suspect]
     Dosage: 200 MG, 2X/DAY
     Dates: start: 20111210, end: 20121012
  3. OGASTRO [Concomitant]
     Indication: ABDOMINAL PAIN UPPER
     Dosage: 30 MG, 1X/DAY
     Route: 048
  4. SOLUPRED [Concomitant]
     Indication: BRAIN OEDEMA
     Dosage: DAILY DOSE OF 80 (NO UNIT), CORRESPONDING 3 DF IN THE MORNING, 1 DF AT MIDDAY
  5. SOLUPRED [Concomitant]
     Dosage: 30 MG, 2X/DAY
     Route: 048

REACTIONS (2)
  - Hepatocellular injury [Recovering/Resolving]
  - Death [Fatal]
